FAERS Safety Report 4667512-7 (Version None)
Quarter: 2005Q2

REPORT INFORMATION
  Report Type: 
  Country: None (occurrence: None)
  Receive Date: 20050520
  Receipt Date: 20050510
  Transmission Date: 20051028
  Serious: Yes (Hospitalization)
  Sender: FDA-Public Use
  Company Number: US-KINGPHARMUSA00001-K200500607

PATIENT
  Age: 84 Year
  Sex: Female

DRUGS (10)
  1. ALTACE [Suspect]
     Indication: HYPERTENSION
     Dosage: 2.5 MG, QD
     Route: 048
     Dates: start: 20031215, end: 20041208
  2. SECTRAL ^AKITA^ [Suspect]
     Dosage: 100 MG, BID
     Route: 048
     Dates: start: 20031215
  3. ALDACTONE [Suspect]
     Dosage: 25 MG, QD
     Route: 048
     Dates: start: 20031215, end: 20041208
  4. EXELON [Suspect]
     Dosage: 4.5 MG, BID
     Route: 048
     Dates: start: 20040715, end: 20041213
  5. PREVISCAN [Concomitant]
     Dosage: 15 MG, UNK
     Route: 048
     Dates: start: 20030101
  6. ELISOR [Concomitant]
     Dosage: 20 MG, UNK
     Route: 048
     Dates: start: 20031215, end: 20041213
  7. LANZOR [Concomitant]
     Dosage: 15 MG, UNK
     Route: 048
     Dates: start: 20030101
  8. ACTONEL [Concomitant]
     Dosage: 35 MG, QW
     Route: 048
     Dates: start: 20030101, end: 20041213
  9. OROCAL D(3) [Concomitant]
     Route: 048
     Dates: start: 20030101, end: 20041213
  10. VITAMIN B-12 [Concomitant]
     Dosage: 250 UG, UNK
     Route: 048
     Dates: start: 20030101, end: 20041213

REACTIONS (15)
  - BLOOD UREA INCREASED [None]
  - BRADYCARDIA [None]
  - BUNDLE BRANCH BLOCK RIGHT [None]
  - CONDITION AGGRAVATED [None]
  - CREATININE RENAL CLEARANCE DECREASED [None]
  - DIARRHOEA [None]
  - DISORIENTATION [None]
  - DRUG INTERACTION [None]
  - FALL [None]
  - HEADACHE [None]
  - LOSS OF CONSCIOUSNESS [None]
  - MALAISE [None]
  - MIOSIS [None]
  - RENAL FAILURE [None]
  - VOMITING [None]
